FAERS Safety Report 26073543 (Version 1)
Quarter: 2025Q4

REPORT INFORMATION
  Report Type: Spontaneous
  Country: JP (occurrence: JP)
  Receive Date: 20251121
  Receipt Date: 20251121
  Transmission Date: 20260118
  Serious: Yes (Death)
  Sender: ASTELLAS
  Company Number: JP-ASTELLAS-2025-AER-058410

PATIENT
  Age: 8 Decade

DRUGS (2)
  1. XOSPATA [Suspect]
     Active Substance: GILTERITINIB
     Indication: Product used for unknown indication
     Route: 065
  2. URSO [Concomitant]
     Active Substance: URSODIOL
     Indication: Hepatic function abnormal
     Route: 065

REACTIONS (2)
  - Hepatic function abnormal [Unknown]
  - Infection [Fatal]
